FAERS Safety Report 21329155 (Version 1)
Quarter: 2022Q3

REPORT INFORMATION
  Report Type: Spontaneous
  Country: CA (occurrence: CA)
  Receive Date: 20220913
  Receipt Date: 20220913
  Transmission Date: 20221026
  Serious: Yes (Other)
  Sender: FDA-Public Use
  Company Number: CA-PFIZER INC-202201142759

PATIENT
  Age: 8 Year
  Sex: Male
  Weight: 25 kg

DRUGS (4)
  1. CYTARABINE [Suspect]
     Active Substance: CYTARABINE
  2. VINCRISTINE SULFATE [Suspect]
     Active Substance: VINCRISTINE SULFATE
  3. PEGASPARGASE [Suspect]
     Active Substance: PEGASPARGASE
     Route: 042
  4. THIOGUANINE [Suspect]
     Active Substance: THIOGUANINE

REACTIONS (1)
  - Febrile neutropenia [Recovered/Resolved]
